FAERS Safety Report 4467521-7 (Version None)
Quarter: 2004Q4

REPORT INFORMATION
  Report Type: 
  Country: None (occurrence: None)
  Receive Date: 20041004
  Receipt Date: 20040928
  Transmission Date: 20050328
  Serious: Yes (Death)
  Sender: FDA-Public Use
  Company Number: KII-2000-0001900

PATIENT
  Sex: Male

DRUGS (1)
  1. OXYFAST CONCENTRATE 20 MG/ML(OXYCODONE HYDROCHLORIDE) ORAL SOLUTION [Suspect]

REACTIONS (1)
  - DEATH [None]
